FAERS Safety Report 24396713 (Version 1)
Quarter: 2024Q4

REPORT INFORMATION
  Report Type: Spontaneous
  Country: CN (occurrence: CN)
  Receive Date: 20241004
  Receipt Date: 20241004
  Transmission Date: 20250114
  Serious: Yes (Other)
  Sender: MYLAN
  Company Number: CN-MYLANLABS-2024M1088378

PATIENT
  Age: 16 Year
  Sex: Female
  Weight: 42 kg

DRUGS (1)
  1. ZOLOFT [Suspect]
     Active Substance: SERTRALINE HYDROCHLORIDE
     Indication: Self-destructive behaviour
     Dosage: 12 DOSAGE FORM, QD
     Route: 048
     Dates: start: 20240422, end: 20240422

REACTIONS (1)
  - Toxicity to various agents [Recovering/Resolving]

NARRATIVE: CASE EVENT DATE: 20240422
